FAERS Safety Report 5066084-5 (Version None)
Quarter: 2006Q3

REPORT INFORMATION
  Report Type: 
  Country: None (occurrence: None)
  Receive Date: 20060725
  Receipt Date: 20060707
  Transmission Date: 20061208
  Serious: Yes (Death, Life-Threatening, Hospitalization)
  Sender: FDA-Public Use
  Company Number: 2006S1000005

PATIENT
  Age: 7 Day
  Sex: Male

DRUGS (16)
  1. INOMAX [Suspect]
     Indication: LUNG DISORDER
     Dosage: 5 PPM; CONT, INH
     Route: 055
     Dates: start: 20051227, end: 20060108
  2. INOMAX [Suspect]
     Indication: PROPHYLAXIS
     Dosage: 5 PPM; CONT, INH
     Route: 055
     Dates: start: 20051227, end: 20060108
  3. AMPICILLIN [Concomitant]
  4. AMIKACIN [Concomitant]
  5. IBUPROFEN [Concomitant]
  6. VANCOMYCIN [Concomitant]
  7. CEFOTAXIME SODIUM [Concomitant]
  8. FENTANYL [Concomitant]
  9. LASIX [Concomitant]
  10. HYDROCORTISONE [Concomitant]
  11. VECURONIUM (VECURONIUM) [Concomitant]
  12. DOPAMINE HCL [Concomitant]
  13. NORCURON [Concomitant]
  14. SODIUM BICARBONATE IN PLASTIC CONTAINER [Concomitant]
  15. IMMUNOGLOBULINS (IMMUNOGLOBULINS) [Concomitant]
  16. ALVOFACT (PHOSPHOLIPIDFRACTION, BOVINE LUNG) [Concomitant]

REACTIONS (9)
  - ACUTE RESPIRATORY DISTRESS SYNDROME [None]
  - C-REACTIVE PROTEIN INCREASED [None]
  - CEREBRAL INFARCTION [None]
  - INTRAVENTRICULAR HAEMORRHAGE NEONATAL [None]
  - NEONATAL DISORDER [None]
  - NEONATAL HYPOXIA [None]
  - NEONATAL RESPIRATORY DISTRESS SYNDROME [None]
  - SEPSIS NEONATAL [None]
  - THROMBOCYTOPENIA NEONATAL [None]
